FAERS Safety Report 24364298 (Version 4)
Quarter: 2024Q4

REPORT INFORMATION
  Report Type: Other
  Country: US (occurrence: US)
  Receive Date: 20240925
  Receipt Date: 20241206
  Transmission Date: 20250115
  Serious: Yes (Other)
  Sender: INTERCEPT PHARMACEUTICALS
  Company Number: US-INTERCEPT-PM2024001895

PATIENT
  Age: 65 Year
  Sex: Female

DRUGS (23)
  1. OCALIVA [Suspect]
     Active Substance: OBETICHOLIC ACID
     Indication: Primary biliary cholangitis
     Dosage: 5 MILLIGRAM, QD
     Route: 048
     Dates: start: 20161205, end: 2024
  2. URSODIOL [Concomitant]
     Active Substance: URSODIOL
     Indication: Primary biliary cholangitis
  3. ACTIGALL [Concomitant]
     Active Substance: URSODIOL
     Dosage: 4 DOSAGE FORM, QD
  4. URSO FORTE [Concomitant]
     Active Substance: URSODIOL
     Indication: Primary biliary cholangitis
  5. BUPROPION [Concomitant]
     Active Substance: BUPROPION
     Indication: Antidepressant therapy
     Dosage: UNK
     Dates: start: 20220217
  6. VIIBRYD [Concomitant]
     Active Substance: VILAZODONE HYDROCHLORIDE
     Indication: Antidepressant therapy
     Dosage: UNK
     Dates: start: 20211227
  7. VITAMINS NOS [Concomitant]
     Active Substance: VITAMINS
  8. WELLBUTRIN XL [Concomitant]
     Active Substance: BUPROPION HYDROCHLORIDE
     Dosage: UNK
     Dates: start: 20220217
  9. ZYRTEC [Concomitant]
     Active Substance: CETIRIZINE HYDROCHLORIDE
     Dosage: 10 MILLIGRAM, QD
     Route: 048
  10. VITAMIN D3 [Concomitant]
     Active Substance: CHOLECALCIFEROL
     Dosage: 1 DOSAGE FORM, QD
     Route: 048
  11. CINNAMOMUM AROMATICUM [Concomitant]
     Route: 048
  12. VITAMIN B12 [Concomitant]
     Active Substance: CYANOCOBALAMIN
  13. VAGIFEM [Concomitant]
     Active Substance: ESTRADIOL
     Dosage: UNK
     Dates: start: 20240312
  14. AURYXIA [Concomitant]
     Active Substance: TETRAFERRIC TRICITRATE DECAHYDRATE
     Dosage: UNK
     Dates: start: 20220312
  15. FOLVITE [Concomitant]
     Active Substance: FOLIC ACID
     Dosage: 1 MILLIGRAM, QD
     Route: 048
  16. TRESIBA [Concomitant]
     Active Substance: INSULIN DEGLUDEC
     Dosage: 32 UNITS IN MORNING
  17. VICTOZA [Concomitant]
     Active Substance: LIRAGLUTIDE
  18. VITAMINS [Concomitant]
     Active Substance: VITAMINS
     Dosage: 1 DOSAGE FORM, QD (IN MORNING)
     Route: 048
  19. OMEGA III [FISH OIL] [Concomitant]
     Dosage: 500 MILLIGRAM, BID
     Route: 048
  20. VITAMIN B6 [Concomitant]
     Active Substance: PYRIDOXINE HYDROCHLORIDE
     Dosage: 500 MILLIGRAM, QD
     Route: 048
  21. MICARDIS [Concomitant]
     Active Substance: TELMISARTAN
     Dosage: UNK
     Dates: start: 20220303
  22. TOPIRAMATE [Concomitant]
     Active Substance: TOPIRAMATE
     Dosage: UNK
     Dates: start: 20220303
  23. GEMTESA [Concomitant]
     Active Substance: VIBEGRON
     Dosage: UNK
     Dates: start: 20240130

REACTIONS (10)
  - Hepatocellular injury [Not Recovered/Not Resolved]
  - Small intestinal obstruction [Recovered/Resolved]
  - Macular degeneration [Not Recovered/Not Resolved]
  - Nephrectomy [Recovered/Resolved]
  - Hepatic cirrhosis [Not Recovered/Not Resolved]
  - Blood pressure abnormal [Not Recovered/Not Resolved]
  - Blood iron abnormal [Not Recovered/Not Resolved]
  - Osteoporosis [Not Recovered/Not Resolved]
  - Paracentesis [Not Recovered/Not Resolved]
  - Transplant evaluation [Not Recovered/Not Resolved]

NARRATIVE: CASE EVENT DATE: 20180401
